FAERS Safety Report 6808092-7 (Version None)
Quarter: 2010Q2

REPORT INFORMATION
  Report Type: 
  Country: None (occurrence: None)
  Receive Date: 20100629
  Receipt Date: 20090223
  Transmission Date: 20101027
  Serious: No
  Sender: FDA-Public Use
  Company Number: US-PFIZER INC-2009174641

PATIENT
  Sex: Male

DRUGS (8)
  1. VIAGRA [Suspect]
     Dosage: 100 MG, UNK
  2. LISINOPRIL [Concomitant]
  3. CLONAZEPAM [Concomitant]
  4. TRICOR [Concomitant]
  5. ROPINIROLE HYDROCHLORIDE [Concomitant]
  6. RASAGILINE MESILATE [Concomitant]
  7. CELEXA [Concomitant]
  8. ACETYLSALICYLIC ACID [Concomitant]

REACTIONS (1)
  - DRUG INEFFECTIVE [None]
